FAERS Safety Report 10944212 (Version 1)
Quarter: 2015Q1

REPORT INFORMATION
  Report Type: Spontaneous
  Country: GB (occurrence: GB)
  Receive Date: 20150323
  Receipt Date: 20150323
  Transmission Date: 20150721
  Serious: Yes (Disabling, Other)
  Sender: FDA-Public Use
  Company Number: GB-ACCORD-029365

PATIENT
  Age: 55 Year
  Sex: Female
  Weight: 74 kg

DRUGS (1)
  1. SERTRALINE [Suspect]
     Active Substance: SERTRALINE HYDROCHLORIDE
     Indication: DEPRESSION
     Route: 048
     Dates: start: 20150216, end: 20150226

REACTIONS (18)
  - Tremor [Recovering/Resolving]
  - Arthralgia [Recovering/Resolving]
  - Visual acuity reduced [Recovering/Resolving]
  - Depression [Recovered/Resolved]
  - Disturbance in attention [Recovered/Resolved]
  - Feeling hot [Unknown]
  - Eye irritation [Recovering/Resolving]
  - Myalgia [Recovered/Resolved]
  - Dizziness [Recovered/Resolved]
  - Fatigue [Recovering/Resolving]
  - Feeling abnormal [Unknown]
  - Chest pain [Recovered/Resolved]
  - Vision blurred [Recovering/Resolving]
  - Headache [Recovered/Resolved]
  - Dry mouth [Recovered/Resolved]
  - Palpitations [Not Recovered/Not Resolved]
  - Eye pain [Recovering/Resolving]
  - Suicidal ideation [Recovered/Resolved]

NARRATIVE: CASE EVENT DATE: 20150216
